APPROVED DRUG PRODUCT: TIMOLOL MALEATE
Active Ingredient: TIMOLOL MALEATE
Strength: EQ 0.25% BASE
Dosage Form/Route: SOLUTION, GEL FORMING/DROPS;OPHTHALMIC
Application: A214645 | Product #001 | TE Code: AB
Applicant: GLAND PHARMA LTD
Approved: Jun 24, 2022 | RLD: No | RS: No | Type: RX